FAERS Safety Report 10241573 (Version 2)
Quarter: 2014Q3

REPORT INFORMATION
  Report Type: Spontaneous
  Country: RU (occurrence: None)
  Receive Date: 20140613
  Receipt Date: 20140811
  Transmission Date: 20150326
  Serious: Yes (Other)
  Sender: FDA-Public Use
  Company Number: COR_00048_2014

PATIENT
  Sex: Male

DRUGS (1)
  1. CEENU [Suspect]
     Active Substance: LOMUSTINE
     Indication: PRODUCT USED FOR UNKNOWN INDICATION
     Dosage: 40 MG, [FREQUENCY UNKNOWN]

REACTIONS (1)
  - Malignant neoplasm progression [None]
